FAERS Safety Report 24258684 (Version 2)
Quarter: 2024Q3

REPORT INFORMATION
  Report Type: Spontaneous
  Country: CN (occurrence: CN)
  Receive Date: 20240828
  Receipt Date: 20240904
  Transmission Date: 20241017
  Serious: Yes (Life-Threatening, Hospitalization, Disabling, Other)
  Sender: AMGEN
  Company Number: CN-AMGEN-CHNSP2024166640

PATIENT
  Age: 58 Year
  Sex: Female
  Weight: 69 kg

DRUGS (3)
  1. CARFILZOMIB [Suspect]
     Active Substance: CARFILZOMIB
     Indication: Plasma cell myeloma
     Dosage: 35 MILLIGRAM (DAY 1 AND DAY2)
     Route: 042
     Dates: start: 20240318, end: 20240325
  2. CARFILZOMIB [Suspect]
     Active Substance: CARFILZOMIB
     Dosage: 50 MILLIGRAM  (DAY 1 AND DAY2)
     Route: 042
     Dates: start: 20240808
  3. CARFILZOMIB [Suspect]
     Active Substance: CARFILZOMIB
     Dosage: 50 MILLIGRAM
     Route: 042
     Dates: start: 20240824, end: 20240825

REACTIONS (2)
  - Myelosuppression [Recovering/Resolving]
  - Myelosuppression [Recovering/Resolving]

NARRATIVE: CASE EVENT DATE: 20240810
